FAERS Safety Report 21773200 (Version 1)
Quarter: 2022Q4

REPORT INFORMATION
  Report Type: Spontaneous
  Country: BR (occurrence: BR)
  Receive Date: 20221223
  Receipt Date: 20221223
  Transmission Date: 20230113
  Serious: Yes (Other)
  Sender: FDA-Public Use
  Company Number: BR-BAYER-2022A171927

PATIENT
  Sex: Female

DRUGS (2)
  1. NEXAVAR [Suspect]
     Active Substance: SORAFENIB
  2. STIVARGA [Suspect]
     Active Substance: REGORAFENIB

REACTIONS (4)
  - Metastases to stomach [None]
  - Metastases to spine [None]
  - Blister [None]
  - Cystic lung disease [None]
